FAERS Safety Report 9999822 (Version 1)
Quarter: 2014Q1

REPORT INFORMATION
  Report Type: Spontaneous
  Country: US (occurrence: None)
  Receive Date: 20140228
  Receipt Date: 20140228
  Transmission Date: 20141002
  Serious: Yes (Hospitalization)
  Sender: FDA-Public Use
  Company Number: PHEH2013US003029

PATIENT
  Age: 28 Year
  Sex: Female

DRUGS (1)
  1. TEGRETOL XR [Suspect]
     Indication: CONVULSION
     Route: 048

REACTIONS (1)
  - Vision blurred [None]
